FAERS Safety Report 7892824-3 (Version None)
Quarter: 2011Q4

REPORT INFORMATION
  Report Type: 
  Country: None (occurrence: None)
  Receive Date: 20111104
  Receipt Date: 20111024
  Transmission Date: 20120403
  Serious: Yes (Death, Other)
  Sender: FDA-Public Use
  Company Number: US-ELI_LILLY_AND_COMPANY-US201109002521

PATIENT
  Sex: Female
  Weight: 53.9 kg

DRUGS (9)
  1. ASPIRIN [Concomitant]
  2. CARTIA XT [Concomitant]
     Dosage: UNK, QD
  3. FOLIC ACID [Concomitant]
  4. HYDROCHLOROTHIAZID [Concomitant]
  5. CALCIUM [Concomitant]
  6. FORTEO [Suspect]
     Indication: OSTEOPOROSIS
     Dosage: UNK, UNKNOWN
     Route: 058
     Dates: start: 20110330
  7. METHOTREXATE [Concomitant]
     Dosage: 7.5 MG, WEEKLY (1/W)
  8. VITAMIN D [Concomitant]
  9. PREDNISONE [Concomitant]
     Dosage: 2.5 MG, QD

REACTIONS (3)
  - ATRIAL FIBRILLATION [None]
  - CARDIAC FAILURE CHRONIC [None]
  - RHEUMATOID ARTHRITIS [None]
